FAERS Safety Report 23298056 (Version 10)
Quarter: 2024Q2

REPORT INFORMATION
  Report Type: Report from Study
  Country: JP (occurrence: JP)
  Receive Date: 20231214
  Receipt Date: 20240502
  Transmission Date: 20240715
  Serious: Yes (Hospitalization, Other)
  Sender: FDA-Public Use
  Company Number: JP-shionogi-202314022_EXJ_P_1

PATIENT
  Age: 51 Year
  Sex: Male
  Weight: 91.6 kg

DRUGS (72)
  1. CYCLOPHOSPHAMIDE [Suspect]
     Active Substance: CYCLOPHOSPHAMIDE
     Dosage: 40 MG/KG, ONCE A DAY, DOSAGE FORM: INJECTION
     Route: 065
     Dates: start: 20230213, end: 20230213
  2. TACROLIMUS [Suspect]
     Active Substance: TACROLIMUS
     Indication: Immunosuppression
     Dosage: 1 MG, ONCE A DAY
     Route: 048
     Dates: start: 20230311
  3. TACROLIMUS [Suspect]
     Active Substance: TACROLIMUS
     Dosage: 0.5 MG, ONCE A DAY
     Route: 048
     Dates: start: 20231220
  4. TACROLIMUS [Suspect]
     Active Substance: TACROLIMUS
     Dosage: 0.5 MG, 3 TIMES WEEKLY
     Route: 048
     Dates: start: 20240109
  5. TACROLIMUS [Suspect]
     Active Substance: TACROLIMUS
     Dosage: 0.5 MG, ONCE A DAY
     Route: 048
     Dates: start: 20240206
  6. SYMPROIC [Suspect]
     Active Substance: NALDEMEDINE
     Indication: Constipation prophylaxis
     Dosage: 0.2 MG, QD
     Route: 048
     Dates: start: 20240228
  7. URSODIOL [Concomitant]
     Active Substance: URSODIOL
     Dosage: 300 MG, EVERY 8 HRS
     Route: 048
     Dates: start: 20230210
  8. MIYA-BM [Concomitant]
     Active Substance: CLOSTRIDIUM BUTYRICUM SPORES STRAIN M-55
     Indication: Constipation prophylaxis
     Dosage: 1 DOSAGE FORM, EVERY 8 HOURS
     Route: 048
     Dates: start: 20230211
  9. VONOPRAZAN FUMARATE [Concomitant]
     Active Substance: VONOPRAZAN FUMARATE
     Indication: Gastritis prophylaxis
     Dosage: 20 MG, ONCE A DAY
     Route: 048
     Dates: start: 20230213
  10. Insulin lispro bs [Concomitant]
     Indication: Type 2 diabetes mellitus
     Dosage: 62 IU, ONCE A DAY
     Route: 058
     Dates: start: 20230221
  11. Insulin lispro bs [Concomitant]
     Dosage: 2 IU, ONCE A DAY
     Route: 058
     Dates: start: 20240323
  12. VICTOZA [Concomitant]
     Active Substance: LIRAGLUTIDE
     Indication: Type 2 diabetes mellitus
     Dosage: 1.2 MG, ONCE A DAY
     Route: 058
     Dates: start: 20230704
  13. ENTRESTO [Concomitant]
     Active Substance: SACUBITRIL\VALSARTAN
     Indication: Hypertension
     Dosage: 400 MG, ONCE A DAY
     Route: 048
     Dates: start: 20231109
  14. ENTRESTO [Concomitant]
     Active Substance: SACUBITRIL\VALSARTAN
     Indication: Renal disorder
  15. NIFEDIPINE [Concomitant]
     Active Substance: NIFEDIPINE
     Indication: Hypertension
     Dosage: 20 MG, ONCE IN 12 HOURS (NIFEDIPINE CR)
     Route: 048
     Dates: start: 20231206
  16. NIFEDIPINE [Concomitant]
     Active Substance: NIFEDIPINE
     Indication: Renal disorder
  17. LENVIMA [Concomitant]
     Active Substance: LENVATINIB
     Dosage: 12 MG, ONCE A DAY
     Route: 048
     Dates: start: 20231205, end: 20231206
  18. LENVIMA [Concomitant]
     Active Substance: LENVATINIB
     Dosage: 8 MG, ONCE A DAY
     Route: 048
     Dates: start: 20231207, end: 20240129
  19. LENVIMA [Concomitant]
     Active Substance: LENVATINIB
     Dosage: 12 MG, ONCE A DAY
     Route: 048
     Dates: start: 20231219, end: 20240109
  20. LENVIMA [Concomitant]
     Active Substance: LENVATINIB
     Dosage: 8 MG, ONCE A DAY
     Route: 048
     Dates: start: 20240124, end: 20240130
  21. PREDONINE [Concomitant]
     Active Substance: PREDNISOLONE
     Indication: Immunosuppression
     Dosage: 20 MG, QD
     Route: 048
     Dates: start: 20240216
  22. PREDONINE [Concomitant]
     Active Substance: PREDNISOLONE
     Dosage: 15 MG, QD
     Route: 048
     Dates: start: 20240326
  23. PREDONINE [Concomitant]
     Active Substance: PREDNISOLONE
     Dosage: 10 MG, QD
     Route: 048
     Dates: start: 20240401
  24. PREDONINE [Concomitant]
     Active Substance: PREDNISOLONE
     Dosage: 5 MG, QD
     Route: 048
     Dates: start: 20240412, end: 20240419
  25. CELLCEPT [Concomitant]
     Active Substance: MYCOPHENOLATE MOFETIL
     Indication: Immunosuppression
     Dosage: 1000 MG, EVERY 1 DAY
     Route: 048
     Dates: start: 20240222
  26. CELLCEPT [Concomitant]
     Active Substance: MYCOPHENOLATE MOFETIL
     Dosage: 1000 MG, EVERY 12 HOURS
     Route: 048
     Dates: start: 20240229
  27. CELLCEPT [Concomitant]
     Active Substance: MYCOPHENOLATE MOFETIL
     Dosage: 1000 MG, EVERY 1 DAY
     Route: 048
     Dates: start: 20240330
  28. CELLCEPT [Concomitant]
     Active Substance: MYCOPHENOLATE MOFETIL
     Dosage: 500 MG, EVERY 1 DAY
     Route: 048
     Dates: start: 20240416
  29. INSULIN GLARGINE [Concomitant]
     Active Substance: INSULIN GLARGINE
     Indication: Type 2 diabetes mellitus
     Dosage: 34 IU, EVERY 1 DAY
     Route: 058
     Dates: start: 20230219
  30. INSULIN GLARGINE [Concomitant]
     Active Substance: INSULIN GLARGINE
     Dosage: 10 IU, EVERY 1 DAY
     Route: 058
     Dates: start: 20240219
  31. HYDROMORPHONE HYDROCHLORIDE [Concomitant]
     Active Substance: HYDROMORPHONE HYDROCHLORIDE
     Indication: Cancer pain
     Dosage: 1 MG
     Route: 048
     Dates: start: 20240228
  32. HYDROMORPHONE HYDROCHLORIDE [Concomitant]
     Active Substance: HYDROMORPHONE HYDROCHLORIDE
     Dosage: 2 MG
     Route: 048
     Dates: start: 20240314
  33. HYDROMORPHONE HYDROCHLORIDE [Concomitant]
     Active Substance: HYDROMORPHONE HYDROCHLORIDE
     Dosage: 1 MG
     Route: 048
     Dates: start: 20240319
  34. HYDROMORPHONE HYDROCHLORIDE [Concomitant]
     Active Substance: HYDROMORPHONE HYDROCHLORIDE
     Indication: Cancer pain
     Dosage: 4 MG, EVERY 1 DAY
     Route: 048
     Dates: start: 20240227
  35. HYDROMORPHONE HYDROCHLORIDE [Concomitant]
     Active Substance: HYDROMORPHONE HYDROCHLORIDE
     Dosage: 6 MG, EVERY 1 DAY
     Route: 048
     Dates: start: 20240301
  36. HYDROMORPHONE HYDROCHLORIDE [Concomitant]
     Active Substance: HYDROMORPHONE HYDROCHLORIDE
     Dosage: 8 MG, QD
     Route: 048
     Dates: start: 20240307
  37. HYDROMORPHONE HYDROCHLORIDE [Concomitant]
     Active Substance: HYDROMORPHONE HYDROCHLORIDE
     Dosage: 6 MG, QD
     Route: 048
     Dates: start: 20240319
  38. NALFURAFINE HYDROCHLORIDE [Concomitant]
     Active Substance: NALFURAFINE HYDROCHLORIDE
     Indication: Pruritus
     Dosage: 2.5 UG, EVERY 1 DAY
     Route: 048
     Dates: start: 20240301
  39. NALFURAFINE HYDROCHLORIDE [Concomitant]
     Active Substance: NALFURAFINE HYDROCHLORIDE
     Dosage: 5.0 UG, EVERY 1 DAY
     Route: 048
     Dates: start: 20240318
  40. CALONAL [Concomitant]
     Active Substance: ACETAMINOPHEN
     Indication: Musculoskeletal chest pain
     Dosage: 500 MG
     Route: 048
     Dates: start: 20240215, end: 20240227
  41. CALONAL [Concomitant]
     Active Substance: ACETAMINOPHEN
     Indication: Chest pain
     Dosage: UNK
     Route: 048
     Dates: start: 20240422
  42. CALONAL [Concomitant]
     Active Substance: ACETAMINOPHEN
     Indication: Musculoskeletal pain
  43. CALONAL [Concomitant]
     Active Substance: ACETAMINOPHEN
     Indication: Cancer pain
  44. BELSOMRA [Concomitant]
     Active Substance: SUVOREXANT
     Indication: Insomnia
     Dosage: 20 MG, ONCE A DAY
     Route: 048
     Dates: start: 20240309
  45. PREGABALIN [Concomitant]
     Active Substance: PREGABALIN
     Indication: Neuropathy peripheral
     Dosage: 25 MG, QD
     Route: 048
     Dates: start: 20240311
  46. PREGABALIN [Concomitant]
     Active Substance: PREGABALIN
     Indication: Neuropathy peripheral
     Route: 048
     Dates: start: 20240311
  47. ALLOID G [Concomitant]
     Active Substance: SODIUM ALGINATE
     Indication: Oesophagitis
     Dosage: 20 ML, 8 HR
     Route: 048
     Dates: start: 20240318
  48. ALLOID G [Concomitant]
     Active Substance: SODIUM ALGINATE
     Indication: Oesophagitis
     Route: 048
     Dates: start: 20240318
  49. Hachiazule [Concomitant]
     Indication: Oesophagitis
     Dosage: UNK
     Route: 049
     Dates: start: 20240320
  50. Hachiazule [Concomitant]
     Indication: Oesophagitis
  51. LIDOCAINE HYDROCHLORIDE NISSIN [Concomitant]
     Indication: Oesophagitis
     Dosage: UNK
     Route: 049
     Dates: start: 20240320
  52. HYDROMORPHONE HYDROCHLORIDE [Concomitant]
     Active Substance: HYDROMORPHONE HYDROCHLORIDE
     Indication: Cancer pain
     Dosage: UNK
     Route: 041
     Dates: start: 20240321
  53. HYDROMORPHONE HYDROCHLORIDE [Concomitant]
     Active Substance: HYDROMORPHONE HYDROCHLORIDE
     Indication: Cancer pain
     Dosage: UNK
     Route: 041
     Dates: start: 20240329
  54. HYDROMORPHONE HYDROCHLORIDE [Concomitant]
     Active Substance: HYDROMORPHONE HYDROCHLORIDE
     Dosage: UNK
     Route: 058
     Dates: start: 20240412
  55. YD SOLITA T NO.3 [Concomitant]
     Indication: Renal disorder
     Dosage: 500 ML, ONCE A DAY, MAINTENANCE MEDIUM
     Route: 041
     Dates: start: 20240322
  56. YD SOLITA T NO.1 [Concomitant]
     Indication: Renal disorder
     Dosage: 1000 ML, QD, INITIATION MEDIUM
     Route: 041
     Dates: start: 20240322
  57. ETILEFRINE HYDROCHLORIDE [Concomitant]
     Active Substance: ETILEFRINE HYDROCHLORIDE
     Indication: Blood pressure management
     Dosage: 3 MG, ONCE A DAY
     Route: 041
     Dates: start: 20240321
  58. ETILEFRINE HYDROCHLORIDE [Concomitant]
     Active Substance: ETILEFRINE HYDROCHLORIDE
     Indication: Blood pressure management
     Dosage: 3 MG, QD
     Route: 041
     Dates: start: 20240321
  59. OLIVE OIL [Concomitant]
     Active Substance: OLIVE OIL
     Indication: Proctitis
     Dosage: UNK
     Route: 062
     Dates: start: 20240327
  60. OLIVE OIL [Concomitant]
     Active Substance: OLIVE OIL
     Indication: Proctitis
  61. ZINC OXIDE [Concomitant]
     Active Substance: ZINC OXIDE
     Indication: Proctitis
     Dosage: UNK
     Route: 062
     Dates: start: 20240327
  62. ZINC OXIDE [Concomitant]
     Active Substance: ZINC OXIDE
     Indication: Proctitis
  63. DIPHENHYDRAMINE [Concomitant]
     Active Substance: DIPHENHYDRAMINE
     Indication: Pruritus
     Dosage: UNK
     Route: 062
     Dates: start: 20240327
  64. DIPHENHYDRAMINE [Concomitant]
     Active Substance: DIPHENHYDRAMINE
     Indication: Pruritus
  65. EURAX H [Concomitant]
     Indication: Pruritus
     Dosage: UNK
     Route: 062
     Dates: start: 20240307
  66. EURAX H [Concomitant]
     Indication: Pruritus
  67. ISOTONIC SODIUM CHLORIDE SOLUTION [Concomitant]
     Active Substance: SODIUM CHLORIDE
     Indication: Renal disorder
     Dosage: 2000 ML, QD
     Route: 041
     Dates: start: 20240318
  68. ISOTONIC SODIUM CHLORIDE SOLUTION [Concomitant]
     Active Substance: SODIUM CHLORIDE
     Indication: Renal disorder
     Dosage: 2000 ML, QD
     Route: 041
     Dates: start: 20240318
  69. MEYLON [Concomitant]
     Active Substance: SODIUM BICARBONATE
     Dosage: 250 ML, ONCE A DAY
     Route: 065
     Dates: start: 20240320
  70. MEYLON [Concomitant]
     Active Substance: SODIUM BICARBONATE
     Dosage: 250 ML, QD
     Route: 065
     Dates: start: 20240320
  71. FUROSEMIDE [Concomitant]
     Active Substance: FUROSEMIDE
     Dosage: 40 MG, ONCE A DAY
     Route: 065
     Dates: start: 20240322, end: 20240325
  72. FUROSEMIDE [Concomitant]
     Active Substance: FUROSEMIDE
     Dosage: 20 MG, QD
     Route: 065
     Dates: start: 20240415

REACTIONS (7)
  - Hepatocellular carcinoma [Not Recovered/Not Resolved]
  - Transplant rejection [Recovering/Resolving]
  - Bile duct stenosis [Not Recovered/Not Resolved]
  - Renal disorder [Recovering/Resolving]
  - Condition aggravated [Recovering/Resolving]
  - Cancer pain [Not Recovered/Not Resolved]
  - Bacteraemia [Recovered/Resolved]

NARRATIVE: CASE EVENT DATE: 20230829
